FAERS Safety Report 9989125 (Version 2)
Quarter: 2014Q1

REPORT INFORMATION
  Report Type: Report from Study
  Country: US (occurrence: US)
  Receive Date: 20140310
  Receipt Date: 20140310
  Transmission Date: 20141002
  Serious: No
  Sender: FDA-Public Use
  Company Number: US-ABBVIE-13P-163-1049817-00

PATIENT
  Age: 64 Year
  Sex: Female

DRUGS (18)
  1. HUMIRA [Suspect]
     Indication: CROHN^S DISEASE
     Dosage: LOADING DOSE
     Dates: start: 20130125, end: 20130125
  2. HUMIRA [Suspect]
     Dosage: LOADING DOSE
  3. HUMIRA [Suspect]
  4. PENTASA [Concomitant]
     Indication: CROHN^S DISEASE
  5. ALBUTEROL [Concomitant]
     Indication: CHRONIC OBSTRUCTIVE PULMONARY DISEASE
     Route: 055
  6. BROVANA [Concomitant]
     Indication: CHRONIC OBSTRUCTIVE PULMONARY DISEASE
  7. BUDESONIDE [Concomitant]
     Indication: CHRONIC OBSTRUCTIVE PULMONARY DISEASE
  8. DICYCLOMINE [Concomitant]
     Indication: GASTRIC DISORDER
  9. HYDROCHLOROTH [Concomitant]
     Indication: BLOOD PRESSURE
  10. OMEPRAZOLE [Concomitant]
     Indication: GASTRIC DISORDER
  11. AMITRIPTYLINE [Concomitant]
     Indication: PAIN
  12. LIDODERM [Concomitant]
     Indication: PAIN
     Route: 062
  13. LYRICA [Concomitant]
     Indication: PAIN
  14. TRAMADOL [Concomitant]
     Indication: PAIN
     Dosage: 37.5-325MG AS NEEDED
  15. VITAMIN D3 [Concomitant]
     Indication: PRODUCT USED FOR UNKNOWN INDICATION
  16. CALCIUM [Concomitant]
     Indication: MINERAL SUPPLEMENTATION
  17. DEXILANT [Concomitant]
     Indication: CROHN^S DISEASE
  18. NORCO [Concomitant]
     Indication: ABDOMINAL PAIN

REACTIONS (9)
  - Crohn^s disease [Not Recovered/Not Resolved]
  - Abdominal pain upper [Not Recovered/Not Resolved]
  - Back pain [Not Recovered/Not Resolved]
  - Nasopharyngitis [Not Recovered/Not Resolved]
  - Cystitis [Unknown]
  - Fatigue [Unknown]
  - Oropharyngeal pain [Unknown]
  - Malaise [Not Recovered/Not Resolved]
  - Abdominal pain upper [Not Recovered/Not Resolved]
